FAERS Safety Report 8193280-0 (Version None)
Quarter: 2012Q1

REPORT INFORMATION
  Report Type: 
  Country: None (occurrence: None)
  Receive Date: 20120308
  Receipt Date: 20120305
  Transmission Date: 20120608
  Serious: Yes (Death)
  Sender: FDA-Public Use
  Company Number: US-CELGENEUS-163-20785-12030519

PATIENT
  Sex: Male

DRUGS (1)
  1. THALOMID [Suspect]
     Indication: METASTASES TO THORAX
     Dosage: 50 MILLIGRAM
     Route: 048
     Dates: start: 20120107, end: 20120216

REACTIONS (1)
  - METASTASES TO THORAX [None]
